FAERS Safety Report 24307059 (Version 1)
Quarter: 2024Q3

REPORT INFORMATION
  Report Type: Spontaneous
  Country: PT (occurrence: PT)
  Receive Date: 20240911
  Receipt Date: 20240911
  Transmission Date: 20241017
  Serious: Yes (Disabling)
  Sender: ELI LILLY AND CO
  Company Number: None

PATIENT
  Age: 66 Year
  Sex: Female
  Weight: 52 kg

DRUGS (5)
  1. FLUOXETINE HYDROCHLORIDE [Suspect]
     Active Substance: FLUOXETINE HYDROCHLORIDE
     Indication: Depression
     Dosage: 20 MG, DAILY (AT BREAKFAST)
     Route: 048
  2. ESCITALOPRAM [Suspect]
     Active Substance: ESCITALOPRAM OXALATE
     Indication: Depression
     Dosage: 10 MG, DAILY (AT BREAKFAST)
     Route: 048
  3. BRINTELLIX [Suspect]
     Active Substance: VORTIOXETINE HYDROBROMIDE
     Indication: Depression
     Dosage: 10 MG, DAILY (AT BREAKFAST)
     Route: 048
  4. VENLAFAXINE HYDROCHLORIDE [Suspect]
     Active Substance: VENLAFAXINE HYDROCHLORIDE
     Indication: Depression
     Dosage: 150 MG, DAILY (AT BREAKFAST)
     Route: 048
     Dates: start: 20180212, end: 20240302
  5. MIRTAZAPINE [Suspect]
     Active Substance: MIRTAZAPINE
     Indication: Depression
     Dosage: 1 DOSAGE FORM, DAILY (AT NIGHT)
     Route: 048
     Dates: start: 20180212, end: 20200420

REACTIONS (2)
  - Tendon rupture [Not Recovered/Not Resolved]
  - Muscle rupture [Not Recovered/Not Resolved]
